FAERS Safety Report 22149951 (Version 1)
Quarter: 2023Q1

REPORT INFORMATION
  Report Type: Spontaneous
  Country: BG (occurrence: BG)
  Receive Date: 20230329
  Receipt Date: 20230329
  Transmission Date: 20230418
  Serious: Yes (Other)
  Sender: FDA-Public Use
  Company Number: BG-AMGEN-BGRSP2023050139

PATIENT
  Age: 58 Year
  Sex: Male

DRUGS (3)
  1. XGEVA [Suspect]
     Active Substance: DENOSUMAB
     Indication: Product used for unknown indication
     Route: 065
  2. ALECTINIB [Concomitant]
     Active Substance: ALECTINIB
  3. LORLATINIB [Concomitant]
     Active Substance: LORLATINIB
     Dosage: 100 MILLIGRAM

REACTIONS (1)
  - Bone disorder [Unknown]
